FAERS Safety Report 8757614 (Version 4)
Quarter: 2013Q3

REPORT INFORMATION
  Report Type: Report from Study
  Country: JP (occurrence: JP)
  Receive Date: 20120828
  Receipt Date: 20130826
  Transmission Date: 20140515
  Serious: Yes (Death, Other)
  Sender: FDA-Public Use
  Company Number: JP-009507513-2011SP044061

PATIENT
  Age: 58 Year
  Sex: Female
  Weight: 42 kg

DRUGS (11)
  1. TEMOZOLOMIDE [Suspect]
     Indication: GLIOBLASTOMA MULTIFORME
     Dosage: 75 MG/M2, QD
     Route: 048
     Dates: start: 20061002, end: 20061112
  2. TEMOZOLOMIDE [Suspect]
     Indication: GLIOBLASTOMA MULTIFORME
     Dosage: 150 MG/M2, QD
     Route: 048
     Dates: start: 20061213, end: 20061217
  3. TEMOZOLOMIDE [Suspect]
     Dosage: 150 MG/M2, QD
     Route: 048
     Dates: start: 20071112, end: 20071116
  4. TEMOZOLOMIDE [Suspect]
     Dosage: 150 MG/M2, QD
     Route: 048
     Dates: start: 20071213, end: 20071217
  5. TEMOZOLOMIDE [Suspect]
     Dosage: 150 MG/M2, QD
     Route: 048
     Dates: start: 20080110, end: 20080114
  6. TEMOZOLOMIDE [Suspect]
     Dosage: 180 MG/M2, QD
     Route: 048
     Dates: start: 20080208, end: 20080212
  7. BAKTAR [Concomitant]
     Indication: ANTIFUNGAL PROPHYLAXIS
     Dosage: FORMULATION: POR, DAILY DOSE UNKNOWN
     Route: 048
     Dates: start: 20061002, end: 20061112
  8. ALESION [Concomitant]
     Dosage: DAILY DOSE UNKNOWN: FORMULATION:POR
     Route: 048
     Dates: start: 20060829, end: 20061016
  9. UNASYN S [Concomitant]
     Dosage: DAILY DOSAGE UNKNOWN
     Route: 042
     Dates: start: 20080802, end: 20080815
  10. DALACIN S [Concomitant]
     Dosage: DAILY DOSAGE UNKNOWN
     Route: 042
     Dates: start: 20080803, end: 20080815
  11. PENTCILLIN [Concomitant]
     Dosage: DAILY DOSAGE UNKNOWN
     Route: 042
     Dates: start: 20080816, end: 20080906

REACTIONS (6)
  - Disease progression [Fatal]
  - C-reactive protein increased [Recovered/Resolved]
  - Blood sodium decreased [Recovered/Resolved]
  - Hypokalaemia [Recovered/Resolved]
  - Lymphocyte count decreased [Recovered/Resolved]
  - White blood cell count decreased [Recovered/Resolved]
